FAERS Safety Report 5022023-4 (Version None)
Quarter: 2006Q2

REPORT INFORMATION
  Report Type: 
  Country: None (occurrence: None)
  Receive Date: 20060609
  Receipt Date: 20060605
  Transmission Date: 20061013
  Serious: Yes (Hospitalization)
  Sender: FDA-Public Use
  Company Number: JP-SP-2006-01385

PATIENT
  Age: 30 Year

DRUGS (2)
  1. IMMUCYST [Suspect]
     Indication: BLADDER CANCER
     Route: 043
  2. IMMUCYST [Suspect]
     Route: 043

REACTIONS (3)
  - DYSURIA [None]
  - HAEMATURIA [None]
  - PYREXIA [None]
